FAERS Safety Report 6358227-8 (Version None)
Quarter: 2009Q3

REPORT INFORMATION
  Report Type: 
  Country: None (occurrence: None)
  Receive Date: 20090916
  Receipt Date: 20090908
  Transmission Date: 20100115
  Serious: Yes (Hospitalization)
  Sender: FDA-Public Use
  Company Number: CA-ASTRAZENECA-2006UW19919

PATIENT
  Age: 43 Year
  Sex: Female

DRUGS (11)
  1. SEROQUEL [Suspect]
     Indication: BIPOLAR II DISORDER
     Route: 048
  2. SEROQUEL [Suspect]
     Dosage: 50MG QAM AND 75MG QHS
     Route: 048
  3. SEROQUEL [Suspect]
     Route: 048
  4. SEROQUEL [Suspect]
     Route: 048
  5. SEROQUEL [Suspect]
     Route: 048
  6. NORTRIPTYLINE HCL [Concomitant]
  7. LITHIUM CARBONATE [Concomitant]
  8. LAMOTRIGINE [Concomitant]
  9. EFFEXOR [Concomitant]
     Dates: start: 20070201
  10. EFFEXOR [Concomitant]
  11. EFFEXOR [Concomitant]

REACTIONS (16)
  - AGITATION [None]
  - BRUXISM [None]
  - CONSTIPATION [None]
  - CRYING [None]
  - DEPRESSION [None]
  - FATIGUE [None]
  - HEADACHE [None]
  - INTERVERTEBRAL DISC PROTRUSION [None]
  - IRRITABILITY [None]
  - MEMORY IMPAIRMENT [None]
  - METRORRHAGIA [None]
  - MOOD SWINGS [None]
  - SEDATION [None]
  - SOMNOLENCE [None]
  - TENSION [None]
  - WEIGHT INCREASED [None]
